FAERS Safety Report 4557702-6 (Version None)
Quarter: 2005Q1

REPORT INFORMATION
  Report Type: 
  Country: None (occurrence: None)
  Receive Date: 20050103
  Receipt Date: 20040826
  Transmission Date: 20050727
  Serious: Yes (Other)
  Sender: FDA-Public Use
  Company Number: 2004UW18180

PATIENT
  Age: 65 Year
  Sex: Female
  Weight: 99.3377 kg

DRUGS (21)
  1. CRESTOR [Suspect]
     Indication: BLOOD CHOLESTEROL INCREASED
     Dosage: 10 MG DAILY PO
     Route: 048
     Dates: start: 20040501
  2. ASPIRIN [Concomitant]
  3. ASACOL [Concomitant]
  4. COUMADIN [Concomitant]
  5. DILANTIN [Concomitant]
  6. DITROPAN [Concomitant]
  7. DOXEPIN HCL [Concomitant]
  8. FUROSEMIDE [Concomitant]
  9. K-DUR 10 [Concomitant]
  10. LOMOTIL [Concomitant]
  11. MOBIC [Concomitant]
  12. NITROSTAT [Concomitant]
  13. NORVASC [Concomitant]
  14. PHENOBARBITAL [Concomitant]
  15. SYNTHROID [Concomitant]
  16. TOPROL-XL [Concomitant]
  17. ZOLOFT [Concomitant]
  18. PREVACID [Concomitant]
  19. COLACE [Concomitant]
  20. CALCIUM GLUCONATE [Concomitant]
  21. VITAMIN E [Concomitant]

REACTIONS (1)
  - CATHETER RELATED COMPLICATION [None]
